FAERS Safety Report 14993943 (Version 1)
Quarter: 2018Q2

REPORT INFORMATION
  Report Type: Spontaneous
  Country: DE (occurrence: DE)
  Receive Date: 20180611
  Receipt Date: 20180611
  Transmission Date: 20180711
  Serious: Yes (Hospitalization)
  Sender: FDA-Public Use
  Company Number: DE-TEVA-2018-DE-905491

PATIENT
  Age: 83 Year
  Sex: Female

DRUGS (8)
  1. VENTOLAIR [Suspect]
     Active Substance: BECLOMETHASONE DIPROPIONATE
     Dosage: 2-0-2-0
  2. MONTELUKAST [Concomitant]
     Active Substance: MONTELUKAST SODIUM
     Dosage: 0-0-1-0
  3. DEKRISTOL 20000I.E. [Concomitant]
     Dosage: 20000 IE, 2/WEEK
  4. SORTIS [Concomitant]
     Active Substance: ATORVASTATIN
     Dosage: 0-0-1-0
  5. MICARDIS HCT 80MG/12,5MG [Concomitant]
     Dosage: 80|12.5 MG, NK
  6. LEVOTHYROXIN-NATRIUM [Concomitant]
     Dosage: 1-0-0-0
  7. PANTOPRAZOL [Concomitant]
     Active Substance: PANTOPRAZOLE SODIUM
     Dosage: 0-0-1-0
  8. SPIOLTO [Concomitant]
     Active Substance: OLODATEROL HYDROCHLORIDE\TIOTROPIUM BROMIDE MONOHYDRATE
     Dosage: 1-0-1-0

REACTIONS (3)
  - Respiratory tract infection [Unknown]
  - General physical health deterioration [Unknown]
  - Cough [Unknown]
